FAERS Safety Report 21741557 (Version 1)
Quarter: 2022Q4

REPORT INFORMATION
  Report Type: Spontaneous
  Country: JP (occurrence: JP)
  Receive Date: 20221216
  Receipt Date: 20221216
  Transmission Date: 20230112
  Serious: Yes (Other)
  Sender: FDA-Public Use
  Company Number: JP-OTSUKA-2022_054717

PATIENT
  Age: 12 Month
  Sex: Female

DRUGS (4)
  1. BUSULFEX [Suspect]
     Active Substance: BUSULFAN
     Indication: Stem cell transplant
     Dosage: 65 MG*H/L; DAYS -5 TO -2
     Route: 042
  2. BUSULFEX [Suspect]
     Active Substance: BUSULFAN
     Indication: Premedication
  3. BUSULFEX [Suspect]
     Active Substance: BUSULFAN
     Indication: Leukocyte adhesion deficiency type I
  4. CYCLOPHOSPHAMIDE [Suspect]
     Active Substance: CYCLOPHOSPHAMIDE
     Indication: Prophylaxis against graft versus host disease
     Dosage: 50 MG/KG/DAY ON DAYS +3 AND +4
     Route: 042

REACTIONS (3)
  - Cytomegalovirus infection reactivation [Unknown]
  - Aspergillus infection [Unknown]
  - Venoocclusive liver disease [Recovered/Resolved]
